FAERS Safety Report 24055397 (Version 2)
Quarter: 2024Q3

REPORT INFORMATION
  Report Type: Spontaneous
  Country: CN (occurrence: CN)
  Receive Date: 20240705
  Receipt Date: 20240711
  Transmission Date: 20241017
  Serious: No
  Sender: TAKEDA
  Company Number: CN-TAKEDA-2024TUS067350

PATIENT
  Age: 69 Year
  Sex: Male
  Weight: 60 kg

DRUGS (1)
  1. ALBUMIN HUMAN [Suspect]
     Active Substance: ALBUMIN HUMAN
     Indication: Haemorrhage
     Dosage: 100 MILLILITER, QD
     Route: 041
     Dates: start: 20240629, end: 20240629

REACTIONS (1)
  - Chills [Recovered/Resolved]

NARRATIVE: CASE EVENT DATE: 20240629
